FAERS Safety Report 5626148-1 (Version None)
Quarter: 2008Q1

REPORT INFORMATION
  Report Type: 
  Country: None (occurrence: None)
  Receive Date: 20080211
  Receipt Date: 20080128
  Transmission Date: 20080703
  Serious: Yes (Death, Hospitalization)
  Sender: FDA-Public Use
  Company Number: MEDI-0006383

PATIENT
  Age: 8 Month
  Sex: Female
  Weight: 5.43 kg

DRUGS (9)
  1. SYNAGIS [Suspect]
     Indication: ANTIVIRAL PROPHYLAXIS
     Dosage: 82 MG, INTRAMUSCULAR
     Route: 030
     Dates: start: 20071211, end: 20071211
  2. BECLOMETHASONE DIPROPIONATE [Concomitant]
  3. OMEPRAZOLE [Concomitant]
  4. FUROSEMIDE [Concomitant]
  5. VITAMIN D [Concomitant]
  6. MOMETASONE (MOMETASONE) [Concomitant]
  7. ALDACTAZIDE (SPIRONOLACTONE, HYDROCHLOROTHIAZIDE) [Concomitant]
  8. FERROUS SULFATE TAB [Concomitant]
  9. POTASSIUM CHLORIDE [Concomitant]

REACTIONS (1)
  - DEATH [None]
